FAERS Safety Report 13674694 (Version 1)
Quarter: 2017Q2

REPORT INFORMATION
  Report Type: Spontaneous
  Country: US (occurrence: US)
  Receive Date: 20170621
  Receipt Date: 20170621
  Transmission Date: 20170830
  Serious: Yes (Other)
  Sender: FDA-Public Use
  Company Number: US-LPDUSPRD-20170829

PATIENT
  Age: 23 Year
  Sex: Female

DRUGS (6)
  1. HYPERTONIC SALINE 3% [Suspect]
     Active Substance: SODIUM CHLORIDE
     Dosage: 50 ML/HOUR
     Route: 065
  2. DEMECLOCYCLINE [Suspect]
     Active Substance: DEMECLOCYCLINE
     Dosage: DOSE NOT PROVIDED
     Route: 065
  3. PHENYLEPHRINE HCL [Suspect]
     Active Substance: PHENYLEPHRINE HYDROCHLORIDE
     Dosage: DOSE NOT PROVIDED
     Route: 065
  4. NOREPINEPHRINE. [Suspect]
     Active Substance: NOREPINEPHRINE
     Dosage: DOSE NOT PROVIDED
     Route: 065
  5. VASOPRESSIN INJECTION, USP (0410-10) [Suspect]
     Active Substance: VASOPRESSIN
     Dosage: DOSE NOT PROVIDED
     Route: 042
  6. DESMOPRESSIN [Concomitant]
     Active Substance: DESMOPRESSIN
     Dosage: 5 MCG
     Route: 065

REACTIONS (1)
  - Diabetes insipidus [Unknown]
